FAERS Safety Report 6518169-1 (Version None)
Quarter: 2009Q4

REPORT INFORMATION
  Report Type: 
  Country: None (occurrence: None)
  Receive Date: 20091223
  Receipt Date: 20091223
  Transmission Date: 20100525
  Serious: Yes (Hospitalization)
  Sender: FDA-Public Use
  Company Number: None

PATIENT
  Age: 40 Year
  Sex: Female
  Weight: 58.9676 kg

DRUGS (1)
  1. CHANTIX [Suspect]
     Indication: SMOKING CESSATION THERAPY
     Dosage: 1 PILL 2 X DAY PO
     Route: 048
     Dates: start: 20090702, end: 20091115

REACTIONS (4)
  - CONVULSION [None]
  - MENTAL DISORDER [None]
  - PARANOIA [None]
  - PRODUCT QUALITY ISSUE [None]
